FAERS Safety Report 4985860-8 (Version None)
Quarter: 2006Q2

REPORT INFORMATION
  Report Type: 
  Country: None (occurrence: None)
  Receive Date: 20060428
  Receipt Date: 20051012
  Transmission Date: 20061013
  Serious: No
  Sender: FDA-Public Use
  Company Number: US-GLAXOSMITHKLINE-A0578034A

PATIENT
  Age: 24 Year
  Sex: Female

DRUGS (1)
  1. ZOFRAN [Suspect]
     Dosage: 8MG AS REQUIRED
     Route: 048
     Dates: start: 20051007

REACTIONS (2)
  - DRUG EXPOSURE DURING PREGNANCY [None]
  - VOMITING [None]
